FAERS Safety Report 12674692 (Version 1)
Quarter: 2016Q3

REPORT INFORMATION
  Report Type: Spontaneous
  Country: CN (occurrence: CN)
  Receive Date: 20160823
  Receipt Date: 20160823
  Transmission Date: 20161109
  Serious: Yes (Other)
  Sender: FDA-Public Use
  Company Number: CN-CIPLA LTD.-2016CN17284

PATIENT

DRUGS (9)
  1. PACLITAXEL. [Suspect]
     Active Substance: PACLITAXEL
     Indication: LUNG CANCER METASTATIC
     Dosage: 175 MG/M2, (300 MG/DL)
     Route: 065
  2. CISPLATIN. [Suspect]
     Active Substance: CISPLATIN
     Dosage: UNK
     Route: 065
     Dates: start: 20120906
  3. CARBOPLATIN. [Suspect]
     Active Substance: CARBOPLATIN
     Indication: LUNG CANCER METASTATIC
     Dosage: AREA UNDER THE CONCENTRATION TIME CURVE 6.0 (770 MG/DL)
     Route: 065
  4. GEMCITABINE [Suspect]
     Active Substance: GEMCITABINE\GEMCITABINE HYDROCHLORIDE
     Dosage: UNK
     Route: 065
     Dates: start: 20120906
  5. CISPLATIN. [Suspect]
     Active Substance: CISPLATIN
     Indication: LUNG CANCER METASTATIC
     Dosage: 75 MG/M2, UNK
     Route: 065
     Dates: start: 20120531
  6. CISPLATIN. [Suspect]
     Active Substance: CISPLATIN
     Indication: DISEASE PROGRESSION
     Dosage: UNK
     Route: 065
     Dates: start: 20120815
  7. BEVACIZUMAB MONOCLONAL ANTIBODY (MAB) [Suspect]
     Active Substance: BEVACIZUMAB
     Indication: LUNG CANCER METASTATIC
     Dosage: 15 MG/KG, (900MG/DL)
     Route: 065
     Dates: start: 20080423, end: 20120116
  8. GEMCITABINE [Suspect]
     Active Substance: GEMCITABINE\GEMCITABINE HYDROCHLORIDE
     Indication: LUNG CANCER METASTATIC
     Dosage: 1250 MG/M2, UNK
     Route: 065
     Dates: start: 20120531
  9. GEMCITABINE [Suspect]
     Active Substance: GEMCITABINE\GEMCITABINE HYDROCHLORIDE
     Indication: DISEASE PROGRESSION
     Dosage: UNK
     Route: 065
     Dates: start: 20120815

REACTIONS (8)
  - Epistaxis [Unknown]
  - Alopecia [Unknown]
  - Bone marrow failure [Unknown]
  - Disease progression [Unknown]
  - Neutropenia [Unknown]
  - Proteinuria [Recovering/Resolving]
  - Toxic neuropathy [Unknown]
  - Thrombocytopenia [Unknown]
